FAERS Safety Report 7383369-8 (Version None)
Quarter: 2011Q1

REPORT INFORMATION
  Report Type: 
  Country: None (occurrence: None)
  Receive Date: 20110330
  Receipt Date: 20110314
  Transmission Date: 20110831
  Serious: Yes (Other)
  Sender: FDA-Public Use
  Company Number: US-PFIZER INC-2009241085

PATIENT
  Sex: Female
  Weight: 57 kg

DRUGS (5)
  1. PROVERA [Suspect]
     Dosage: 5 MG, UNK
     Route: 048
     Dates: start: 19980930, end: 20000112
  2. PREMARIN [Suspect]
     Indication: HORMONE REPLACEMENT THERAPY
     Dosage: 0.625 MG, UNK
     Dates: start: 19871210, end: 19880930
  3. PREMPRO [Suspect]
     Indication: HORMONE REPLACEMENT THERAPY
     Dosage: UNK
     Dates: end: 20000101
  4. PREMARIN [Suspect]
     Dosage: 0.9 MG, UNK
     Dates: start: 19980930, end: 20000112
  5. PROVERA [Suspect]
     Indication: HORMONE REPLACEMENT THERAPY
     Dosage: 10 MG, UNK
     Route: 048
     Dates: start: 19871210, end: 19880930

REACTIONS (1)
  - BREAST CANCER FEMALE [None]
